FAERS Safety Report 15372301 (Version 12)
Quarter: 2023Q2

REPORT INFORMATION
  Report Type: Spontaneous
  Country: FR (occurrence: FR)
  Receive Date: 20180911
  Receipt Date: 20230412
  Transmission Date: 20230722
  Serious: Yes (Death, Life-Threatening, Hospitalization, Other)
  Sender: FDA-Public Use
  Company Number: PHHY2017FR204739

PATIENT
  Age: 69 Year
  Sex: Male
  Weight: 60 kg

DRUGS (14)
  1. LEVOFLOXACIN [Suspect]
     Active Substance: LEVOFLOXACIN
     Indication: Product used for unknown indication
     Dosage: UNK
     Route: 065
  2. BOSULIF [Suspect]
     Active Substance: BOSUTINIB MONOHYDRATE
     Indication: Chronic myeloid leukaemia
     Dosage: 200 MG, QD (1X/DAY)
     Route: 048
     Dates: start: 20170921, end: 2017
  3. BOSULIF [Suspect]
     Active Substance: BOSUTINIB MONOHYDRATE
     Dosage: 400 MG, QD (1X/DAY)
     Route: 048
     Dates: start: 20171011, end: 201710
  4. BOSULIF [Suspect]
     Active Substance: BOSUTINIB MONOHYDRATE
     Dosage: 500 MG, QD (1X/DAY)
     Route: 048
     Dates: start: 20171020, end: 201710
  5. BOSULIF [Suspect]
     Active Substance: BOSUTINIB MONOHYDRATE
     Dosage: 400 MG, QD (1X/DAY)
     Route: 048
     Dates: start: 20171026, end: 20171029
  6. BOSULIF [Suspect]
     Active Substance: BOSUTINIB MONOHYDRATE
     Dosage: 300 MG, QD (1X/DAY)
     Route: 048
     Dates: start: 20171205, end: 201712
  7. BOSULIF [Suspect]
     Active Substance: BOSUTINIB MONOHYDRATE
     Dosage: 400 MG, QD (1X/DAY)
     Route: 048
     Dates: start: 20171228, end: 20171230
  8. BOSULIF [Suspect]
     Active Substance: BOSUTINIB MONOHYDRATE
     Dosage: 400 MG, QD (1X/DAY)
     Route: 048
     Dates: start: 20180104, end: 201801
  9. BOSULIF [Suspect]
     Active Substance: BOSUTINIB MONOHYDRATE
     Dosage: 400 MG, QD (1X/DAY)
     Route: 048
     Dates: start: 20180118, end: 20180120
  10. BOSULIF [Suspect]
     Active Substance: BOSUTINIB MONOHYDRATE
     Dosage: 400 MG, QD (1X/DAY)
     Route: 048
     Dates: start: 20180124
  11. BOSULIF [Suspect]
     Active Substance: BOSUTINIB MONOHYDRATE
     Dosage: 200 MG, QD (DAILY)
     Route: 048
     Dates: start: 20180302
  12. BOSULIF [Suspect]
     Active Substance: BOSUTINIB MONOHYDRATE
     Dosage: UNK UNK, QD (200 MG DAY BEFORE DIALYSES AND 300 MG A DAY OTHER DAYS)
     Route: 048
     Dates: start: 201805, end: 20180524
  13. BOSULIF [Suspect]
     Active Substance: BOSUTINIB MONOHYDRATE
     Dosage: UNK
     Route: 048
     Dates: start: 20180604
  14. HYDREA [Concomitant]
     Active Substance: HYDROXYUREA
     Indication: Product used for unknown indication
     Dosage: UNK
     Route: 065

REACTIONS (19)
  - General physical health deterioration [Fatal]
  - Neoplasm progression [Fatal]
  - Cachexia [Fatal]
  - Loss of personal independence in daily activities [Fatal]
  - General physical health deterioration [Fatal]
  - Diarrhoea [Recovered/Resolved]
  - Haemorrhage [Recovered/Resolved]
  - Haemoglobin decreased [Recovered/Resolved]
  - Malaise [Recovered/Resolved]
  - Diarrhoea [Recovered/Resolved]
  - Diarrhoea [Recovered/Resolved]
  - Dermatitis bullous [Recovered/Resolved with Sequelae]
  - Bronchitis [Recovered/Resolved]
  - General physical health deterioration [Not Recovered/Not Resolved]
  - Acne [Recovered/Resolved]
  - Venous stenosis [Recovered/Resolved]
  - Thermal burn [Recovered/Resolved]
  - Nausea [Recovered/Resolved]
  - Vomiting [Recovered/Resolved]

NARRATIVE: CASE EVENT DATE: 20171020
